FAERS Safety Report 9335090 (Version 1)
Quarter: 2013Q2

REPORT INFORMATION
  Report Type: Spontaneous
  Country: US (occurrence: US)
  Receive Date: 20130606
  Receipt Date: 20130606
  Transmission Date: 20140414
  Serious: No
  Sender: FDA-Public Use
  Company Number: US-AMGEN-USASP2013030702

PATIENT
  Sex: Male
  Weight: 96.15 kg

DRUGS (6)
  1. XGEVA [Suspect]
     Indication: METASTASES TO BONE
     Dosage: 120 MG, UNK
     Route: 058
     Dates: start: 20130327
  2. CASODEX [Concomitant]
     Indication: PROSTATE CANCER
     Dosage: 50 MG, QD
  3. LUPRON [Concomitant]
     Indication: PROSTATE CANCER
     Dosage: 22.5 MG, Q3MO
     Route: 030
  4. MVI [Concomitant]
     Indication: SUPPLEMENTATION THERAPY
     Dosage: 1 TAB
     Route: 048
  5. CALCIUM [Concomitant]
     Indication: METASTASES TO BONE
     Dosage: 1000 MG, BID
     Route: 048
  6. VITAMIN D3 [Concomitant]
     Indication: METASTASES TO BONE
     Dosage: 4000 IU, QD
     Route: 048

REACTIONS (1)
  - Dyspnoea [Not Recovered/Not Resolved]
